FAERS Safety Report 4578602-1 (Version None)
Quarter: 2005Q1

REPORT INFORMATION
  Report Type: 
  Country: None (occurrence: None)
  Receive Date: 20050208
  Receipt Date: 20050208
  Transmission Date: 20050727
  Serious: Yes (Other)
  Sender: FDA-Public Use
  Company Number: None

PATIENT
  Age: 60 Year
  Sex: Female

DRUGS (4)
  1. VERAPAMIL EXTENDED-RELEASE [Suspect]
     Indication: HEART RATE IRREGULAR
     Dosage: 1 PO BID
     Route: 048
     Dates: start: 20040701
  2. PREVACID [Concomitant]
  3. CRESTOR [Concomitant]
  4. TRICOR [Concomitant]

REACTIONS (2)
  - DRUG INEFFECTIVE [None]
  - PHARMACEUTICAL PRODUCT COMPLAINT [None]
